FAERS Safety Report 19605111 (Version 6)
Quarter: 2021Q4

REPORT INFORMATION
  Report Type: Spontaneous
  Country: US (occurrence: US)
  Receive Date: 20210723
  Receipt Date: 20211021
  Transmission Date: 20220303
  Serious: Yes (Other)
  Sender: FDA-Public Use
  Company Number: US-PFIZER INC-2020375919

PATIENT
  Age: 63 Year
  Sex: Male
  Weight: 158.73 kg

DRUGS (1)
  1. LYRICA [Suspect]
     Active Substance: PREGABALIN
     Indication: Pain
     Dosage: 100 MG, THREE TIMES A DAY
     Route: 048

REACTIONS (7)
  - Blindness [Unknown]
  - Visual impairment [Unknown]
  - Mobility decreased [Unknown]
  - Malaise [Unknown]
  - Somnolence [Unknown]
  - Insomnia [Unknown]
  - Bedridden [Unknown]
